FAERS Safety Report 7635129-8 (Version None)
Quarter: 2011Q3

REPORT INFORMATION
  Report Type: 
  Country: None (occurrence: None)
  Receive Date: 20110726
  Receipt Date: 20110620
  Transmission Date: 20111222
  Serious: Yes (Death, Life-Threatening)
  Sender: FDA-Public Use
  Company Number: PHHY2010JP80534

PATIENT
  Sex: Male

DRUGS (9)
  1. AFINITOR [Suspect]
     Dosage: 10 MG, DAILY
     Route: 048
     Dates: start: 20100804, end: 20100824
  2. AFINITOR [Suspect]
     Dosage: 5 MG, DAILY
     Route: 048
     Dates: start: 20100831, end: 20101109
  3. KREMEZIN [Concomitant]
     Dosage: 2 DF, UNK
     Route: 048
     Dates: start: 20100714, end: 20101120
  4. AFINITOR [Suspect]
     Indication: METASTATIC RENAL CELL CARCINOMA
     Dosage: 10 MG, DAILY
     Route: 048
     Dates: start: 20100714, end: 20100728
  5. SUNITINIB MALATE [Concomitant]
     Indication: METASTATIC RENAL CELL CARCINOMA
     Dosage: 50 MG,
     Route: 048
     Dates: start: 20090206
  6. NEUFAN [Concomitant]
     Dosage: UNK
  7. KETOPROFEN [Concomitant]
     Dosage: UNK
     Route: 062
     Dates: start: 20100714, end: 20101120
  8. SUNITINIB MALATE [Concomitant]
     Dosage: UNK
     Dates: start: 20100620
  9. NEUFAN [Concomitant]
     Dosage: 100 MG,
     Route: 048
     Dates: start: 20100714, end: 20101120

REACTIONS (2)
  - DEPRESSED LEVEL OF CONSCIOUSNESS [None]
  - CEREBRAL HAEMORRHAGE [None]
